FAERS Safety Report 4946310-0 (Version None)
Quarter: 2006Q1

REPORT INFORMATION
  Report Type: 
  Country: None (occurrence: None)
  Receive Date: 20060316
  Receipt Date: 20060316
  Transmission Date: 20060701
  Serious: Yes (Other)
  Sender: FDA-Public Use
  Company Number: None

PATIENT
  Age: 51 Year
  Sex: Female
  Weight: 56.6996 kg

DRUGS (2)
  1. AMBIEN [Suspect]
     Indication: INSOMNIA
     Dosage: 1 TAB EVERY NIGHT ORAL
     Route: 048
     Dates: start: 19970101, end: 20060312
  2. NEFAZODONE HCL [Concomitant]

REACTIONS (6)
  - ABNORMAL SLEEP-RELATED EVENT [None]
  - DRUG EFFECT DECREASED [None]
  - EATING DISORDER [None]
  - MEMORY IMPAIRMENT [None]
  - SLEEP WALKING [None]
  - WEIGHT INCREASED [None]
